FAERS Safety Report 15898641 (Version 1)
Quarter: 2019Q1

REPORT INFORMATION
  Report Type: Spontaneous
  Country: GB (occurrence: GB)
  Receive Date: 20190201
  Receipt Date: 20190201
  Transmission Date: 20190417
  Serious: Yes (Hospitalization)
  Sender: FDA-Public Use
  Company Number: GB-ACCORD-104827

PATIENT
  Age: 31 Year
  Sex: Female

DRUGS (2)
  1. FEXOFENADINE/FEXOFENADINE HYDROCHLORIDE [Concomitant]
  2. LISINOPRIL. [Suspect]
     Active Substance: LISINOPRIL
     Indication: MIGRAINE
     Dosage: INCREASING REGIMEN
     Route: 048
     Dates: start: 20180411, end: 20180416

REACTIONS (2)
  - Seizure [Recovered/Resolved]
  - Off label use [Unknown]

NARRATIVE: CASE EVENT DATE: 20180413
